FAERS Safety Report 23322573 (Version 1)
Quarter: 2023Q4

REPORT INFORMATION
  Report Type: Spontaneous
  Country: PL (occurrence: PL)
  Receive Date: 20231220
  Receipt Date: 20231220
  Transmission Date: 20240109
  Serious: Yes (Other)
  Sender: FDA-Public Use
  Company Number: None

PATIENT
  Age: 46 Year
  Sex: Female

DRUGS (3)
  1. DOSTINEX [Suspect]
     Active Substance: CABERGOLINE
     Dosage: UNK
  2. ESCITALOPRAM [Concomitant]
     Active Substance: ESCITALOPRAM OXALATE
     Dosage: UNK
  3. DEPREXOLET [Concomitant]
     Dosage: UNK

REACTIONS (3)
  - Depression [Unknown]
  - Dyskinesia [Unknown]
  - Suicidal ideation [Unknown]
